FAERS Safety Report 4814447-2 (Version None)
Quarter: 2005Q4

REPORT INFORMATION
  Report Type: 
  Country: None (occurrence: None)
  Receive Date: 20051028
  Receipt Date: 20050829
  Transmission Date: 20060501
  Serious: No
  Sender: FDA-Public Use
  Company Number: US-GLAXOSMITHKLINE-A0572188A

PATIENT
  Age: 55 Year
  Sex: Female

DRUGS (5)
  1. ADVAIR DISKUS 100/50 [Suspect]
     Indication: ASTHMA
     Dosage: 1PUFF TWICE PER DAY
     Route: 055
     Dates: start: 20050821, end: 20050824
  2. LORATADINE [Concomitant]
  3. ALBUTEROL [Concomitant]
  4. ROBITUSSIN DM [Concomitant]
  5. SINGULAIR [Concomitant]

REACTIONS (8)
  - APHONIA [None]
  - DYSPHONIA [None]
  - GLOSSODYNIA [None]
  - NAUSEA [None]
  - PHARYNGOLARYNGEAL PAIN [None]
  - POLYP [None]
  - SWOLLEN TONGUE [None]
  - VOMITING [None]
